FAERS Safety Report 9790797 (Version 4)
Quarter: 2018Q2

REPORT INFORMATION
  Report Type: Spontaneous
  Country: FR (occurrence: FR)
  Receive Date: 20131231
  Receipt Date: 20180605
  Transmission Date: 20180711
  Serious: Yes (Hospitalization)
  Sender: FDA-Public Use
  Company Number: PHHY2013FR153286

PATIENT
  Age: 46 Year
  Sex: Female
  Weight: 88 kg

DRUGS (12)
  1. ASPARAGINASE [Concomitant]
     Active Substance: ASPARAGINASE
     Indication: PRODUCT USED FOR UNKNOWN INDICATION
     Route: 065
  2. TASIGNA [Suspect]
     Active Substance: NILOTINIB
     Indication: OFF LABEL USE
  3. METHOTREXATE. [Suspect]
     Active Substance: METHOTREXATE
     Indication: ACUTE LYMPHOCYTIC LEUKAEMIA
     Dosage: UNK
     Route: 065
     Dates: start: 20131128
  4. ENDOXAN [Concomitant]
     Active Substance: CYCLOPHOSPHAMIDE
     Indication: PRODUCT USED FOR UNKNOWN INDICATION
     Route: 065
  5. METHOTREXATE. [Suspect]
     Active Substance: METHOTREXATE
     Dosage: 1 G/M2 CORRESPONDING TO 1,9 MG ON DAY 1
     Route: 065
  6. ARACYTINE [Suspect]
     Active Substance: CYTARABINE
     Indication: ACUTE LYMPHOCYTIC LEUKAEMIA
     Route: 065
     Dates: start: 20131128
  7. CYTARABINE EBEWE [Suspect]
     Active Substance: CYTARABINE
     Indication: ACUTE LYMPHOCYTIC LEUKAEMIA
     Dosage: 5700 MG MILIGRAMS, 2X/DAY ON DAY 2 AND DAY 3
     Route: 065
     Dates: start: 20131128, end: 20131130
  8. TASIGNA [Suspect]
     Active Substance: NILOTINIB
     Indication: ACUTE LYMPHOCYTIC LEUKAEMIA
     Dosage: 400 MG, 2X/DAY
     Route: 048
     Dates: start: 20131128, end: 20131204
  9. TOBRADEX [Concomitant]
     Active Substance: DEXAMETHASONE\TOBRAMYCIN
     Indication: PRODUCT USED FOR UNKNOWN INDICATION
     Dosage: 1 GTT, 4X/DAY
     Route: 047
  10. CYTARABINE EBEWE [Suspect]
     Active Substance: CYTARABINE
     Dosage: 1 GTT, 4X/DAY
     Route: 065
  11. VP-16 [Concomitant]
     Active Substance: ETOPOSIDE
     Indication: PRODUCT USED FOR UNKNOWN INDICATION
     Route: 065
  12. CALCIUM FOLINATE [Concomitant]
     Active Substance: LEUCOVORIN CALCIUM
     Indication: PRODUCT USED FOR UNKNOWN INDICATION
     Dosage: 25 MG, 4X/DAY FROM H36 OF METHOTREXATE TO BE ADJUSTED ACCORDING TO BLOOD METHOTREXATE CONCENTRATIONS
     Route: 065
     Dates: start: 201311

REACTIONS (7)
  - Neuropathy peripheral [Recovering/Resolving]
  - Pain in extremity [Recovered/Resolved]
  - Gait disturbance [Recovering/Resolving]
  - Renal failure [Recovered/Resolved]
  - Febrile bone marrow aplasia [Recovered/Resolved]
  - Pyrexia [Recovered/Resolved]
  - Encephalitis [Recovered/Resolved]

NARRATIVE: CASE EVENT DATE: 20131130
